FAERS Safety Report 21204717 (Version 1)
Quarter: 2022Q3

REPORT INFORMATION
  Report Type: Spontaneous
  Country: US (occurrence: None)
  Receive Date: 20220812
  Receipt Date: 20220812
  Transmission Date: 20221027
  Serious: No
  Sender: FDA-Public Use
  Company Number: 2022A272902

PATIENT
  Age: 32 Year
  Sex: Female
  Weight: 54.4 kg

DRUGS (2)
  1. SYMLIN [Suspect]
     Active Substance: PRAMLINTIDE ACETATE
     Indication: Type 1 diabetes mellitus
     Route: 058
     Dates: start: 2018
  2. SYMLIN [Suspect]
     Active Substance: PRAMLINTIDE ACETATE
     Indication: Type 1 diabetes mellitus
     Route: 058

REACTIONS (4)
  - Addison^s disease [Not Recovered/Not Resolved]
  - Insulin resistance [Not Recovered/Not Resolved]
  - Device malfunction [Unknown]
  - Blood glucose increased [Unknown]

NARRATIVE: CASE EVENT DATE: 20170101
